FAERS Safety Report 25725147 (Version 1)
Quarter: 2025Q3

REPORT INFORMATION
  Report Type: Spontaneous
  Country: GB (occurrence: GB)
  Receive Date: 20250826
  Receipt Date: 20250826
  Transmission Date: 20251021
  Serious: Yes (Other)
  Sender: ALKEM
  Company Number: None

PATIENT
  Age: 72 Year
  Sex: Male

DRUGS (33)
  1. PREGABALIN [Suspect]
     Active Substance: PREGABALIN
     Indication: Product used for unknown indication
     Dosage: 1 DOSAGE FORM, BID (12 HOUR), CAPSULE, HARD (ONE CAPSULE TO BE TAKEN TWICE A DAY)
     Route: 065
  2. COTRIMOXAZOLE [Suspect]
     Active Substance: SULFAMETHOXAZOLE\TRIMETHOPRIM
     Indication: Product used for unknown indication
     Route: 065
  3. CALCIUM CARBONATE\CHOLECALCIFEROL [Concomitant]
     Active Substance: CALCIUM CARBONATE\CHOLECALCIFEROL
     Indication: Product used for unknown indication
     Dosage: 1 DOSAGE FORM, BID (0.5 DAY), DISSOLVE 1500 MG / 400 UNIT EFFERVESCENT TABLETS (ONE TO BE TAKEN TWIC
     Route: 065
  4. ALOGLIPTIN [Concomitant]
     Active Substance: ALOGLIPTIN
     Indication: Product used for unknown indication
     Route: 065
  5. AMLODIPINE [Concomitant]
     Active Substance: AMLODIPINE BESYLATE
     Indication: Product used for unknown indication
     Dosage: 1 DOSAGE FORM, QD (ONE TO BE TAKEN EACH DAY)
     Route: 065
  6. ASPIRIN [Concomitant]
     Active Substance: ASPIRIN
     Indication: Product used for unknown indication
     Dosage: 1 DOSAGE FORM, QD (ONE TO BE TAKEN EACH DAY)
     Route: 065
  7. AZITHROMYCIN [Concomitant]
     Active Substance: AZITHROMYCIN
     Indication: Product used for unknown indication
     Route: 065
  8. BECLOMETHASONE DIPROPIONATE [Concomitant]
     Active Substance: BECLOMETHASONE DIPROPIONATE
     Indication: Product used for unknown indication
     Dosage: 2 DOSAGE FORM, BID 0.5 DAY (TWO SPRAYS TO BE USED IN EACH NOSTRIL TWICE A DAY)
     Route: 045
  9. CANAGLIFLOZIN [Concomitant]
     Active Substance: CANAGLIFLOZIN
     Indication: Product used for unknown indication
     Route: 065
  10. CARBOCYSTEINE [Concomitant]
     Active Substance: CARBOCYSTEINE
     Indication: Product used for unknown indication
     Dosage: 2 DOSAGE FORM, TID (0.33 DAY) (TWO TO BE TAKEN THREE TIMES DAILY)
     Route: 065
  11. DAPAGLIFLOZIN [Concomitant]
     Active Substance: DAPAGLIFLOZIN
     Indication: Product used for unknown indication
     Route: 065
  12. EMPAGLIFLOZIN [Concomitant]
     Active Substance: EMPAGLIFLOZIN
     Indication: Product used for unknown indication
     Route: 065
  13. Evohaler [Concomitant]
     Indication: Product used for unknown indication
     Dosage: UNK, QID (ONE OR TWO PUFFS TO BE INHALED UP TO FOUR TIMES A DAY)
  14. FAMOTIDINE [Concomitant]
     Active Substance: FAMOTIDINE
     Indication: Product used for unknown indication
     Route: 065
  15. FERROUS SULFATE [Concomitant]
     Active Substance: FERROUS SULFATE
     Indication: Product used for unknown indication
     Dosage: 1 DOSAGE FORM, QD (ONE TO BE TAKEN EACH DAY AT LUNCHTIME)
     Route: 065
  16. FINASTERIDE [Concomitant]
     Active Substance: FINASTERIDE
     Indication: Product used for unknown indication
     Dosage: 1 DOSAGE FORM, QD (ONE TO BE TAKEN EACH DAY)
     Route: 065
  17. FOLIC ACID [Concomitant]
     Active Substance: FOLIC ACID
     Indication: Product used for unknown indication
     Dosage: 1 DOSAGE FORM, QD (ONE TO BE TAKEN EACH DAY)
     Route: 065
  18. Humulin-KwikPen [Concomitant]
     Indication: Product used for unknown indication
     Route: 065
  19. Hylo Night [Concomitant]
     Indication: Product used for unknown indication
     Dosage: UNK, QID (0.25 DAY) (T EYE OINTMENT PRESERVATIVE FREE APPLY APPROX 1 CENTIMETER, FOUR TIMES DAILY TO
  20. LINAGLIPTIN [Concomitant]
     Active Substance: LINAGLIPTIN
     Indication: Product used for unknown indication
     Route: 065
  21. Metformin, Rosiglitazone [Concomitant]
     Indication: Product used for unknown indication
     Route: 065
  22. Metformin, Saxagliptin [Concomitant]
     Indication: Product used for unknown indication
     Route: 065
  23. METFORMIN\VILDAGLIPTIN [Concomitant]
     Active Substance: METFORMIN\VILDAGLIPTIN
     Indication: Product used for unknown indication
     Route: 065
  24. METFORMIN HYDROCHLORIDE [Concomitant]
     Active Substance: METFORMIN HYDROCHLORIDE
     Indication: Product used for unknown indication
     Dosage: 1 DOSAGE FORM, BID (0.5 DAY) (ONE TO BE TAKEN TWICE A DAY WITH BREAKFAST AND EVENING MEAL)
     Route: 065
  25. Metformin hydrochloride, Pioglitazone hydrochloride [Concomitant]
     Indication: Product used for unknown indication
     Route: 065
  26. Metformin hydrochloride, Sitagliptin hydrochloride [Concomitant]
     Indication: Product used for unknown indication
     Route: 065
  27. MIRABEGRON [Concomitant]
     Active Substance: MIRABEGRON
     Indication: Product used for unknown indication
     Dosage: 1 DOSAGE FORM, QD (ONE TO BE TAKEN EACH DAY)
     Route: 065
  28. MIRTAZAPINE [Concomitant]
     Active Substance: MIRTAZAPINE
     Indication: Product used for unknown indication
     Route: 065
  29. ROSUVASTATIN [Concomitant]
     Active Substance: ROSUVASTATIN
     Indication: Product used for unknown indication
     Route: 065
  30. SODIUM HYALURONATE [Concomitant]
     Active Substance: HYALURONATE SODIUM
     Indication: Product used for unknown indication
  31. THIAMINE HYDROCHLORIDE [Concomitant]
     Active Substance: THIAMINE HYDROCHLORIDE
     Indication: Product used for unknown indication
     Dosage: 1 DOSAGE FORM, TID (0.33 DAY) (ONE TO BE TAKEN THREE TIMES A DAY)
     Route: 065
  32. BECLOMETHASONE DIPROPIONATE\FORMOTEROL FUMARATE\GLYCOPYRROLATE [Concomitant]
     Active Substance: BECLOMETHASONE DIPROPIONATE\FORMOTEROL FUMARATE\GLYCOPYRROLATE
     Indication: Product used for unknown indication
     Dosage: 2 DOSAGE FORM, BID (0.5 DAY) (2 PUFFS TO BE INHALED TWICE A DAY)
  33. VENTOLIN [Concomitant]
     Active Substance: ALBUTEROL SULFATE
     Indication: Product used for unknown indication
     Route: 065

REACTIONS (1)
  - Acute kidney injury [Recovered/Resolved]
